FAERS Safety Report 4302423-8 (Version None)
Quarter: 2004Q1

REPORT INFORMATION
  Report Type: 
  Country: None (occurrence: None)
  Receive Date: 20040223
  Receipt Date: 20040223
  Transmission Date: 20041129
  Serious: Yes (Disabling)
  Sender: FDA-Public Use
  Company Number: None

PATIENT
  Age: 38 Year
  Sex: Male
  Weight: 90.7194 kg

DRUGS (3)
  1. METHADOSE [Suspect]
     Indication: PAIN
     Dosage: 50 MGS TID ORAL
     Route: 048
     Dates: start: 20010210, end: 20040222
  2. METHADOSE [Suspect]
     Indication: POST LAMINECTOMY SYNDROME
     Dosage: 50 MGS TID ORAL
     Route: 048
     Dates: start: 20010210, end: 20040222
  3. METHADOSE [Suspect]
     Indication: SURGERY
     Dosage: 50 MGS TID ORAL
     Route: 048
     Dates: start: 20010210, end: 20040222

REACTIONS (3)
  - DRUG LEVEL DECREASED [None]
  - DRUG WITHDRAWAL SYNDROME [None]
  - PHARMACEUTICAL PRODUCT COMPLAINT [None]
